FAERS Safety Report 10993297 (Version 3)
Quarter: 2015Q2

REPORT INFORMATION
  Report Type: Report from Study
  Country: FR (occurrence: FR)
  Receive Date: 20150407
  Receipt Date: 20150529
  Transmission Date: 20150821
  Serious: Yes (Hospitalization)
  Sender: FDA-Public Use
  Company Number: FR-ROCHE-1560707

PATIENT
  Age: 85 Year
  Sex: Male

DRUGS (12)
  1. METFORMIN [Concomitant]
     Active Substance: METFORMIN HYDROCHLORIDE
  2. DETENSIEL [Concomitant]
     Active Substance: BISOPROLOL FUMARATE
  3. LANTUS [Concomitant]
     Active Substance: INSULIN GLARGINE
  4. RANIBIZUMAB [Suspect]
     Active Substance: RANIBIZUMAB
     Route: 050
     Dates: start: 20141002
  5. HUMALOG [Concomitant]
     Active Substance: INSULIN LISPRO
  6. GALVUS [Concomitant]
     Active Substance: VILDAGLIPTIN
  7. RANIBIZUMAB [Suspect]
     Active Substance: RANIBIZUMAB
     Indication: VISUAL IMPAIRMENT
     Route: 050
     Dates: start: 20140807
  8. RANIBIZUMAB [Suspect]
     Active Substance: RANIBIZUMAB
     Route: 050
     Dates: start: 20140904, end: 201411
  9. RANIBIZUMAB [Suspect]
     Active Substance: RANIBIZUMAB
     Dosage: LAST DOSE PRIOR TO SAE ON 06/NOV/2014
     Route: 050
     Dates: start: 20141106
  10. TAHOR [Concomitant]
     Active Substance: ATORVASTATIN CALCIUM
  11. KARDEGIC [Concomitant]
     Active Substance: ASPIRIN LYSINE
  12. RAMIPRIL. [Concomitant]
     Active Substance: RAMIPRIL

REACTIONS (3)
  - Myocardial ischaemia [Unknown]
  - Bladder disorder [Not Recovered/Not Resolved]
  - Acute respiratory failure [Recovering/Resolving]

NARRATIVE: CASE EVENT DATE: 201502
